FAERS Safety Report 7319804-0 (Version None)
Quarter: 2011Q1

REPORT INFORMATION
  Report Type: 
  Country: None (occurrence: None)
  Receive Date: 20110228
  Receipt Date: 20100928
  Transmission Date: 20110831
  Serious: Yes (Hospitalization)
  Sender: FDA-Public Use
  Company Number: A0884290A

PATIENT
  Age: 22 Year
  Sex: Female

DRUGS (2)
  1. TRIVORA-21 [Concomitant]
     Indication: ORAL CONTRACEPTION
  2. LAMICTAL [Suspect]
     Route: 048
     Dates: start: 20080101

REACTIONS (1)
  - STEVENS-JOHNSON SYNDROME [None]
